FAERS Safety Report 18400870 (Version 1)
Quarter: 2020Q4

REPORT INFORMATION
  Report Type: Spontaneous
  Country: US (occurrence: US)
  Receive Date: 20201019
  Receipt Date: 20201019
  Transmission Date: 20210114
  Serious: No
  Sender: FDA-Public Use
  Company Number: US-009507513-2010USA005854

PATIENT
  Age: 18 Year
  Sex: Female

DRUGS (2)
  1. NUVARING [Suspect]
     Active Substance: ETHINYL ESTRADIOL\ETONOGESTREL
     Dosage: 1 RING PER MONTH (3 WEEKS IN, 1 WEEK OUT)
     Route: 067
     Dates: start: 20201005
  2. NUVARING [Suspect]
     Active Substance: ETHINYL ESTRADIOL\ETONOGESTREL
     Dosage: 1 RING PER MONTH (3 WEEKS IN, 1 WEEK OUT)
     Route: 067
     Dates: start: 20200907, end: 202009

REACTIONS (6)
  - Incorrect product administration duration [Unknown]
  - Device breakage [Unknown]
  - No adverse event [Unknown]
  - Device breakage [Unknown]
  - Inappropriate schedule of product administration [Unknown]
  - Product prescribing issue [Unknown]

NARRATIVE: CASE EVENT DATE: 2020
